FAERS Safety Report 8372251-5 (Version None)
Quarter: 2012Q2

REPORT INFORMATION
  Report Type: 
  Country: None (occurrence: None)
  Receive Date: 20120521
  Receipt Date: 20120507
  Transmission Date: 20120825
  Serious: Yes (Other)
  Sender: FDA-Public Use
  Company Number: NL-AMGEN-NLDSP2012029963

PATIENT
  Age: 47 Year
  Sex: Male

DRUGS (2)
  1. ENBREL [Suspect]
     Indication: PSORIATIC ARTHROPATHY
     Dosage: 50 MG, WEEKLY
     Route: 058
     Dates: start: 20091228, end: 20120326
  2. PIROXICAM [Concomitant]
     Indication: PSORIATIC ARTHROPATHY
     Dosage: 20 MG, AS NEEDED

REACTIONS (1)
  - TESTICULAR SEMINOMA (PURE) [None]
